FAERS Safety Report 11051011 (Version 1)
Quarter: 2015Q2

REPORT INFORMATION
  Report Type: Spontaneous
  Country: US (occurrence: US)
  Receive Date: 20150421
  Receipt Date: 20150421
  Transmission Date: 20150821
  Serious: Yes (Hospitalization, Other)
  Sender: FDA-Public Use
  Company Number: US-AMGEN-USASP2015037330

PATIENT
  Age: 43 Year
  Sex: Female

DRUGS (1)
  1. ENBREL [Suspect]
     Active Substance: ETANERCEPT
     Indication: PSORIASIS
     Dosage: 50 MG, QWK
     Route: 065
     Dates: start: 20141124

REACTIONS (11)
  - Pharyngitis [Recovered/Resolved]
  - Dysphemia [Recovering/Resolving]
  - Injection site mass [Recovered/Resolved]
  - Gallbladder disorder [Not Recovered/Not Resolved]
  - Blood pressure increased [Recovering/Resolving]
  - Diabetes mellitus [Recovering/Resolving]
  - Injection site erythema [Recovered/Resolved]
  - Injection site rash [Recovered/Resolved]
  - Syncope [Recovering/Resolving]
  - Dizziness [Recovering/Resolving]
  - Bronchitis [Recovered/Resolved]

NARRATIVE: CASE EVENT DATE: 2015
